FAERS Safety Report 25006425 (Version 1)
Quarter: 2025Q1

REPORT INFORMATION
  Report Type: Spontaneous
  Country: AR (occurrence: AR)
  Receive Date: 20250224
  Receipt Date: 20250224
  Transmission Date: 20250408
  Serious: No
  Sender: ROCHE
  Company Number: AR-ROCHE-10000214352

PATIENT
  Age: 43 Year

DRUGS (2)
  1. OCRELIZUMAB [Suspect]
     Active Substance: OCRELIZUMAB
     Indication: Primary progressive multiple sclerosis
     Route: 065
     Dates: start: 2024
  2. BENZNIDAZOLE [Concomitant]
     Active Substance: BENZNIDAZOLE
     Indication: Product used for unknown indication
     Dates: start: 20250121

REACTIONS (1)
  - American trypanosomiasis [Unknown]

NARRATIVE: CASE EVENT DATE: 20241219
